FAERS Safety Report 5902896-0 (Version None)
Quarter: 2008Q3

REPORT INFORMATION
  Report Type: 
  Country: None (occurrence: None)
  Receive Date: 20080930
  Receipt Date: 20080923
  Transmission Date: 20090109
  Serious: Yes (Other)
  Sender: FDA-Public Use
  Company Number: PHBS2008IT05810

PATIENT
  Age: 62 Year
  Sex: Male

DRUGS (4)
  1. ENTACAPONE-LEVODOPA-CARBIDOPA [Suspect]
     Indication: PARKINSON'S DISEASE
     Dosage: L 600/ C 150/ E 200 MG, QD
     Dates: start: 20070101
  2. BORNAPRINE [Concomitant]
     Indication: PARKINSON'S DISEASE
     Dosage: 4 MG, QD
  3. CABERGOLINE [Concomitant]
     Indication: PARKINSON'S DISEASE
     Dosage: 4 MG, QD
  4. CABERGOLINE [Concomitant]
     Dosage: 2 MG, QD

REACTIONS (10)
  - ASTHENIA [None]
  - BRADYKINESIA [None]
  - COGWHEEL RIGIDITY [None]
  - GAIT DISTURBANCE [None]
  - HYPERTONIA [None]
  - ON AND OFF PHENOMENON [None]
  - PARKINSONIAN REST TREMOR [None]
  - PLEUROTHOTONUS [None]
  - POSTURE ABNORMAL [None]
  - TREMOR [None]
